FAERS Safety Report 4366308-3 (Version None)
Quarter: 2004Q2

REPORT INFORMATION
  Report Type: 
  Country: None (occurrence: None)
  Receive Date: 20040526
  Receipt Date: 20040526
  Transmission Date: 20050107
  Serious: Yes (Hospitalization)
  Sender: FDA-Public Use
  Company Number: None

PATIENT
  Age: 49 Year
  Sex: Female
  Weight: 46.4 kg

DRUGS (6)
  1. TAXOL [Suspect]
     Indication: BREAST CANCER METASTATIC
     Dosage: 125 MG IV D1
     Route: 042
     Dates: start: 20040514
  2. DECADRON [Concomitant]
  3. BENADRYL [Concomitant]
  4. PEPCID [Concomitant]
  5. ZOFRAN [Concomitant]
  6. AUGMENTIN [Concomitant]

REACTIONS (2)
  - BLOOD PHOSPHORUS DECREASED [None]
  - PULMONARY OEDEMA [None]
